FAERS Safety Report 17134917 (Version 1)
Quarter: 2019Q4

REPORT INFORMATION
  Report Type: Spontaneous
  Country: PR (occurrence: PR)
  Receive Date: 20191210
  Receipt Date: 20191210
  Transmission Date: 20200122
  Serious: Yes (Death)
  Sender: FDA-Public Use
  Company Number: PR-BAYER-2019-215245

PATIENT
  Age: 67 Year
  Sex: Female

DRUGS (1)
  1. CIPROFLOXACIN. [Suspect]
     Active Substance: CIPROFLOXACIN
     Dosage: UNK

REACTIONS (5)
  - Stevens-Johnson syndrome [Fatal]
  - Dysphagia [None]
  - Toxic epidermal necrolysis [Fatal]
  - Sepsis [Fatal]
  - Hypoalbuminaemia [None]
